FAERS Safety Report 14852115 (Version 1)
Quarter: 2018Q2

REPORT INFORMATION
  Report Type: Spontaneous
  Country: AU (occurrence: AU)
  Receive Date: 20180507
  Receipt Date: 20180507
  Transmission Date: 20180711
  Serious: Yes (Other)
  Sender: FDA-Public Use
  Company Number: AU-IPCA LABORATORIES LIMITED-IPC-2018-AU-001008

PATIENT

DRUGS (1)
  1. METFORMIN [Suspect]
     Active Substance: METFORMIN HYDROCHLORIDE
     Indication: PRODUCT USED FOR UNKNOWN INDICATION
     Dosage: UNK
     Route: 064

REACTIONS (2)
  - Talipes [Unknown]
  - Foetal exposure during pregnancy [Unknown]
